FAERS Safety Report 15265484 (Version 3)
Quarter: 2019Q1

REPORT INFORMATION
  Report Type: Spontaneous
  Country: US (occurrence: US)
  Receive Date: 20180810
  Receipt Date: 20190328
  Transmission Date: 20190417
  Serious: No
  Sender: FDA-Public Use
  Company Number: PHEH2018US031744

PATIENT
  Sex: Female

DRUGS (3)
  1. HCTZ [Suspect]
     Active Substance: HYDROCHLOROTHIAZIDE
     Indication: PRODUCT USED FOR UNKNOWN INDICATION
     Dosage: UNK
     Route: 065
  2. DIOVAN [Suspect]
     Active Substance: VALSARTAN
     Indication: HYPERTENSION
     Dosage: 160 UNK, BID
     Route: 065
  3. VALSARTAN. [Suspect]
     Active Substance: VALSARTAN
     Indication: PRODUCT USED FOR UNKNOWN INDICATION
     Dosage: 160 MG, UNK
     Route: 065

REACTIONS (8)
  - Eye disorder [Unknown]
  - Ill-defined disorder [Unknown]
  - Dizziness [Unknown]
  - Memory impairment [Unknown]
  - Asthenia [Unknown]
  - Headache [Unknown]
  - Drug ineffective [Unknown]
  - Malaise [Unknown]
